FAERS Safety Report 18273204 (Version 1)
Quarter: 2020Q3

REPORT INFORMATION
  Report Type: Spontaneous
  Country: CN (occurrence: CN)
  Receive Date: 20200916
  Receipt Date: 20200916
  Transmission Date: 20201103
  Serious: Yes (Other)
  Sender: FDA-Public Use
  Company Number: CN-PFIZER INC-2020355613

PATIENT
  Age: 32 Year
  Sex: Female
  Weight: 49 kg

DRUGS (3)
  1. MISOPROSTOL. [Suspect]
     Active Substance: MISOPROSTOL
     Indication: ABORTION
     Dosage: 600 UG, 1X/DAY
     Route: 048
     Dates: start: 20200829, end: 20200829
  2. MISOPROSTOL. [Suspect]
     Active Substance: MISOPROSTOL
     Dosage: 400 UG, 1X/DAY
     Route: 067
     Dates: start: 20200829, end: 20200829
  3. HAN ZHU TING [Concomitant]
     Indication: ABORTION
     Dosage: 50 MG, 2X/DAY
     Route: 048
     Dates: start: 20200827, end: 20200829

REACTIONS (4)
  - Product use in unapproved indication [Unknown]
  - Off label use [Unknown]
  - Rash [Recovering/Resolving]
  - Pruritus [Recovering/Resolving]

NARRATIVE: CASE EVENT DATE: 20200829
